FAERS Safety Report 4936358-4 (Version None)
Quarter: 2006Q1

REPORT INFORMATION
  Report Type: 
  Country: None (occurrence: None)
  Receive Date: 20060302
  Receipt Date: 20060210
  Transmission Date: 20060701
  Serious: Yes (Hospitalization, Other)
  Sender: FDA-Public Use
  Company Number: US200602002514

PATIENT
  Age: 59 Year
  Sex: Male

DRUGS (2)
  1. HUMULIN N [Suspect]
     Dosage: 40 U EACH MORNING
     Dates: start: 20050901, end: 20060101
  2. LANTUS [Concomitant]

REACTIONS (2)
  - BLOOD GLUCOSE INCREASED [None]
  - CORONARY ARTERY REOCCLUSION [None]
